FAERS Safety Report 6671216-9 (Version None)
Quarter: 2010Q2

REPORT INFORMATION
  Report Type: 
  Country: None (occurrence: None)
  Receive Date: 20100407
  Receipt Date: 20100326
  Transmission Date: 20101027
  Serious: Yes (Life-Threatening, Hospitalization)
  Sender: FDA-Public Use
  Company Number: US-RB-005375-10

PATIENT
  Age: 24 Month
  Sex: Male

DRUGS (1)
  1. SUBOXONE [Suspect]
     Dosage: DOSE UNKNOWN
     Route: 048
     Dates: start: 20100116, end: 20100116

REACTIONS (3)
  - ACCIDENTAL EXPOSURE [None]
  - CYANOSIS [None]
  - DYSPNOEA [None]
